FAERS Safety Report 7459843-2 (Version None)
Quarter: 2011Q2

REPORT INFORMATION
  Report Type: 
  Country: None (occurrence: None)
  Receive Date: 20110504
  Receipt Date: 20110504
  Transmission Date: 20111010
  Serious: Yes (Hospitalization)
  Sender: FDA-Public Use
  Company Number: None

PATIENT
  Sex: Female
  Weight: 57.1532 kg

DRUGS (1)
  1. BACTRIM [Suspect]
     Indication: SINUSITIS
     Dosage: 1 TABLET BID PO
     Route: 048
     Dates: start: 20090311, end: 20090311

REACTIONS (6)
  - VOMITING [None]
  - NAUSEA [None]
  - DEHYDRATION [None]
  - INFLUENZA LIKE ILLNESS [None]
  - VIRAL INFECTION [None]
  - PAIN IN EXTREMITY [None]
